FAERS Safety Report 4559940-5 (Version None)
Quarter: 2005Q1

REPORT INFORMATION
  Report Type: 
  Country: None (occurrence: None)
  Receive Date: 20050124
  Receipt Date: 20050114
  Transmission Date: 20050727
  Serious: Yes (Hospitalization)
  Sender: FDA-Public Use
  Company Number: 003921

PATIENT
  Age: 60 Year
  Sex: Female
  Weight: 72.6 kg

DRUGS (3)
  1. TAMOXIFEN CITRATE [Suspect]
     Indication: BREAST CANCER
     Dosage: 1.00 TABLET, QD, ORAL
     Route: 048
     Dates: start: 20031001
  2. VITAMINS NOS (VITAMINS NOS) [Concomitant]
  3. LUVOX [Concomitant]

REACTIONS (1)
  - UTERINE PROLAPSE [None]
